FAERS Safety Report 25381120 (Version 2)
Quarter: 2025Q2

REPORT INFORMATION
  Report Type: Report from Study
  Country: US (occurrence: US)
  Receive Date: 20250530
  Receipt Date: 20250617
  Transmission Date: 20250716
  Serious: Yes (Other)
  Sender: MALLINCKRODT
  Company Number: US-MALLINCKRODT-MNK202503089

PATIENT
  Age: 55 Year
  Sex: Female

DRUGS (4)
  1. CORTICOTROPIN [Suspect]
     Active Substance: CORTICOTROPIN
     Indication: Product used for unknown indication
  2. METHOTREXATE [Concomitant]
     Active Substance: METHOTREXATE
  3. SIMPONI ARIA [Concomitant]
     Active Substance: GOLIMUMAB
  4. SIMPONI ARIA [Concomitant]
     Active Substance: GOLIMUMAB
     Dates: start: 202504

REACTIONS (4)
  - Skin injury [Unknown]
  - Fall [Unknown]
  - Scar [Unknown]
  - Injection site pain [Unknown]

NARRATIVE: CASE EVENT DATE: 20241101
